FAERS Safety Report 4698219-8 (Version None)
Quarter: 2005Q2

REPORT INFORMATION
  Report Type: 
  Country: None (occurrence: None)
  Receive Date: 20050623
  Receipt Date: 20050422
  Transmission Date: 20051028
  Serious: Yes (Hospitalization, Other)
  Sender: FDA-Public Use
  Company Number: GB-JNJFOC-20050406923

PATIENT
  Age: 14 Year
  Sex: Male

DRUGS (16)
  1. PROPULSID [Suspect]
     Indication: DRUG USE FOR UNKNOWN INDICATION
     Route: 065
  2. RANITIDINE [Concomitant]
     Route: 065
  3. OMEPRAZOLE [Concomitant]
     Route: 065
  4. DOMPERIDONE [Concomitant]
     Route: 065
  5. LACTULOSE [Concomitant]
     Route: 065
  6. FYBOGEL [Concomitant]
     Route: 065
  7. DAKTACORT [Concomitant]
     Route: 065
  8. TIMODINE [Concomitant]
     Route: 065
  9. TIMODINE [Concomitant]
     Route: 065
  10. TIMODINE [Concomitant]
     Route: 065
  11. TIMODINE [Concomitant]
     Route: 065
  12. TIMODINE [Concomitant]
     Route: 065
  13. TIMODINE [Concomitant]
     Route: 065
  14. TIMODINE [Concomitant]
     Route: 065
  15. GAVISCON [Concomitant]
     Route: 065
  16. GAVISCON [Concomitant]
     Route: 065

REACTIONS (14)
  - ASTHMA [None]
  - BALANITIS [None]
  - CONSTIPATION [None]
  - COUGH [None]
  - HEAD INJURY [None]
  - LIMB INJURY [None]
  - LOCALISED INFECTION [None]
  - PAIN IN EXTREMITY [None]
  - PHARYNGOLARYNGEAL PAIN [None]
  - PHOTOPHOBIA [None]
  - RADIUS FRACTURE [None]
  - TENDON RUPTURE [None]
  - UPPER RESPIRATORY TRACT INFECTION [None]
  - VIRAL INFECTION [None]
